FAERS Safety Report 7327383-7 (Version None)
Quarter: 2011Q1

REPORT INFORMATION
  Report Type: 
  Country: None (occurrence: None)
  Receive Date: 20110302
  Receipt Date: 20110204
  Transmission Date: 20110831
  Serious: No
  Sender: FDA-Public Use
  Company Number: US-B.I. PHARMACEUTICALS,INC./RIDGEFIELD-2011-BP-03615BP

PATIENT
  Sex: Male

DRUGS (2)
  1. PRADAXA [Suspect]
     Indication: EXTRASYSTOLES
     Route: 048
     Dates: start: 20110101, end: 20110201
  2. ASPIRIN [Concomitant]

REACTIONS (2)
  - DIARRHOEA [None]
  - GASTRIC DILATATION [None]
